FAERS Safety Report 9734745 (Version 6)
Quarter: 2014Q2

REPORT INFORMATION
  Report Type: Report from Study
  Country: DE (occurrence: DE)
  Receive Date: 20131206
  Receipt Date: 20140620
  Transmission Date: 20141212
  Serious: Yes (Hospitalization)
  Sender: FDA-Public Use
  Company Number: DE-JNJFOC-20131016233

PATIENT
  Age: 75 Year
  Sex: Female
  Weight: 62 kg

DRUGS (23)
  1. XARELTO [Suspect]
     Indication: ATRIAL FIBRILLATION
     Route: 048
     Dates: start: 20131025
  2. XARELTO [Suspect]
     Indication: ATRIAL FIBRILLATION
     Route: 048
     Dates: start: 20130213, end: 20130628
  3. XARELTO [Suspect]
     Indication: ATRIAL FIBRILLATION
     Route: 048
     Dates: start: 20130701
  4. XARELTO [Suspect]
     Indication: CEREBROVASCULAR ACCIDENT PROPHYLAXIS
     Route: 048
     Dates: start: 20130213, end: 20130628
  5. XARELTO [Suspect]
     Indication: CEREBROVASCULAR ACCIDENT PROPHYLAXIS
     Route: 048
     Dates: start: 20130701
  6. XARELTO [Suspect]
     Indication: CEREBROVASCULAR ACCIDENT PROPHYLAXIS
     Route: 048
     Dates: start: 20131025
  7. IBUPROFEN [Concomitant]
     Route: 065
     Dates: start: 201304
  8. RAMIPRIL [Concomitant]
     Route: 065
     Dates: start: 20131025
  9. RAMIPRIL [Concomitant]
     Route: 065
     Dates: start: 201306
  10. RAMIPRIL [Concomitant]
     Route: 065
     Dates: start: 20130813
  11. RAMIPRIL [Concomitant]
     Route: 065
     Dates: start: 2011
  12. AMLODIPINE [Concomitant]
     Route: 065
     Dates: start: 201304
  13. METOPROLOL [Concomitant]
     Route: 065
     Dates: start: 201304
  14. METOPROLOL [Concomitant]
     Route: 065
     Dates: start: 20130517
  15. LEVOTHYROXINE [Concomitant]
     Route: 065
     Dates: start: 2010
  16. PANTOPRAZOLE [Concomitant]
     Route: 065
     Dates: start: 201304
  17. BISOPROLOL [Concomitant]
     Route: 065
     Dates: start: 201306
  18. TAMBOCOR [Concomitant]
     Route: 065
     Dates: start: 201306
  19. CARMEN [Concomitant]
     Route: 065
     Dates: start: 201306
  20. DRONEDARONE [Concomitant]
     Route: 065
     Dates: start: 2011, end: 201304
  21. HYDROCHLOROTHIAZID [Concomitant]
     Route: 065
     Dates: start: 2013
  22. HYDROCHLOROTHIAZID [Concomitant]
     Route: 065
     Dates: start: 20130628
  23. SIMVASTATIN [Concomitant]
     Route: 065
     Dates: start: 2011, end: 201304

REACTIONS (6)
  - Pericardial effusion [Recovered/Resolved]
  - Atrial fibrillation [Recovered/Resolved]
  - Cardiac tamponade [Recovering/Resolving]
  - Cardiac ablation [Recovering/Resolving]
  - Pericardial effusion [Recovering/Resolving]
  - Dyspnoea exertional [Recovering/Resolving]
